FAERS Safety Report 5286741-5 (Version None)
Quarter: 2007Q2

REPORT INFORMATION
  Report Type: 
  Country: None (occurrence: None)
  Receive Date: 20070404
  Receipt Date: 20070327
  Transmission Date: 20071010
  Serious: Yes (Other)
  Sender: FDA-Public Use
  Company Number: GB-GLAXOSMITHKLINE-B0464743A

PATIENT
  Age: 28 Year
  Sex: Female

DRUGS (1)
  1. NIQUITIN CQ PATCH [Suspect]
     Dosage: 21MG PER DAY
     Route: 062
     Dates: start: 20070308, end: 20070308

REACTIONS (7)
  - APPLICATION SITE PAIN [None]
  - CHEST PAIN [None]
  - DIZZINESS [None]
  - FATIGUE [None]
  - FEELING HOT [None]
  - PAIN IN EXTREMITY [None]
  - PRURITUS [None]
